FAERS Safety Report 18360047 (Version 1)
Quarter: 2020Q4

REPORT INFORMATION
  Report Type: Spontaneous
  Country: US (occurrence: US)
  Receive Date: 20201007
  Receipt Date: 20201007
  Transmission Date: 20210114
  Serious: Yes (Death)
  Sender: FDA-Public Use
  Company Number: None

PATIENT
  Age: 78 Year
  Sex: Male

DRUGS (1)
  1. REPATHA [Suspect]
     Active Substance: EVOLOCUMAB
     Indication: HYPERLIPIDAEMIA
     Dosage: 140MG/ML EVERY 2 WKS SUBCUTANOUES
     Route: 058
     Dates: start: 20190502, end: 20201006

REACTIONS (1)
  - Death [None]

NARRATIVE: CASE EVENT DATE: 20201006
